FAERS Safety Report 4953711-3 (Version None)
Quarter: 2006Q1

REPORT INFORMATION
  Report Type: 
  Country: None (occurrence: None)
  Receive Date: 20060327
  Receipt Date: 20060315
  Transmission Date: 20060701
  Serious: Yes (Life-Threatening)
  Sender: FDA-Public Use
  Company Number: US-JNJFOC-20060304731

PATIENT
  Age: 63 Year
  Sex: Male
  Weight: 65 kg

DRUGS (7)
  1. COMMERCIAL ABCIXIMAB [Suspect]
     Indication: ANTICOAGULANT THERAPY
  2. THIENOPYRIDINE [Suspect]
     Indication: ACUTE CORONARY SYNDROME
  3. ACETYLSALICYLIC ACID SRT [Concomitant]
     Indication: ACUTE CORONARY SYNDROME
  4. ENOXAPARIN SODIUM [Concomitant]
     Indication: ANTICOAGULANT THERAPY
  5. HEPARIN [Concomitant]
     Indication: ANTICOAGULANT THERAPY
  6. PROMOCARD [Concomitant]
     Indication: ACUTE CORONARY SYNDROME
  7. SIMVASTATIN [Concomitant]

REACTIONS (4)
  - FEMORAL ARTERY DISSECTION [None]
  - FEMORAL ARTERY OCCLUSION [None]
  - RETROPERITONEAL HAEMORRHAGE [None]
  - SYNCOPE VASOVAGAL [None]
